FAERS Safety Report 5610399-6 (Version None)
Quarter: 2008Q1

REPORT INFORMATION
  Report Type: 
  Country: None (occurrence: None)
  Receive Date: 20080128
  Receipt Date: 20080107
  Transmission Date: 20080703
  Serious: Yes (Other)
  Sender: FDA-Public Use
  Company Number: 200810110BCC

PATIENT
  Age: 38 Year
  Sex: Female
  Weight: 88.4514 kg

DRUGS (4)
  1. ORIGINAL PHILLIPS' MILK OF MAGNESIA LIQUID (MAGNESIUM [Suspect]
     Indication: CONSTIPATION
     Dosage: ORAL
     Route: 048
     Dates: start: 19980101
  2. PHILLIPS LAXATIVE DIETARY SUPPLEMENT (MAGNESIUM OXIDE) [Suspect]
     Indication: CONSTIPATION
  3. MIRALAX [Concomitant]
  4. CASCARA SEGRADA [Concomitant]

REACTIONS (7)
  - BLOOD CHOLESTEROL INCREASED [None]
  - CARDIOMEGALY [None]
  - DIABETES MELLITUS [None]
  - DYSPNOEA [None]
  - RENAL FAILURE [None]
  - THYROID DISORDER [None]
  - WEIGHT DECREASED [None]
